FAERS Safety Report 4446229-8 (Version None)
Quarter: 2004Q3

REPORT INFORMATION
  Report Type: 
  Country: None (occurrence: None)
  Receive Date: 20040902
  Receipt Date: 20031104
  Transmission Date: 20050211
  Serious: Yes (Death)
  Sender: FDA-Public Use
  Company Number: MK200311-0021-0

PATIENT
  Age: 75 Year
  Sex: Female

DRUGS (3)
  1. HEXABRIX [Suspect]
     Indication: ARTERIOGRAM CORONARY
     Dosage: 25 ML, IA, ONCE
     Route: 014
     Dates: start: 20031007, end: 20031007
  2. OPTIRAY 350 [Suspect]
     Indication: ARTERIOGRAM CORONARY
     Dosage: 75ML, IA, ONCE
     Route: 014
     Dates: start: 20031007, end: 20031007
  3. VISIPAQUE [Concomitant]

REACTIONS (4)
  - BLOOD PRESSURE SYSTOLIC DECREASED [None]
  - BLOOD PRESSURE SYSTOLIC INCREASED [None]
  - CONTRAST MEDIA REACTION [None]
  - DYSPNOEA [None]
